FAERS Safety Report 13321000 (Version 1)
Quarter: 2017Q1

REPORT INFORMATION
  Report Type: Spontaneous
  Country: None (occurrence: None)
  Receive Date: 20170310
  Receipt Date: 20170310
  Transmission Date: 20170428
  Serious: Yes (Hospitalization)
  Sender: FDA-Public Use
  Company Number: US-BRAINTREE LABORATORIES-170135

PATIENT
  Age: 79 Year
  Sex: Female
  Weight: 85 kg

DRUGS (1)
  1. GOLYTELY [Suspect]
     Active Substance: POLYETHYLENE GLYCOL 3350\POTASSIUM CHLORIDE\SODIUM BICARBONATE\SODIUM CHLORIDE\SODIUM SULFATE ANHYDROUS
     Indication: COLONOSCOPY
     Dosage: ~0.15 L
     Route: 050

REACTIONS (9)
  - Dyspnoea [None]
  - Hypoxia [None]
  - Cyanosis [None]
  - Pyrexia [None]
  - Cerebrovascular accident [None]
  - Sputum purulent [None]
  - Cough [None]
  - Loss of consciousness [None]
  - Bronchial obstruction [None]
